FAERS Safety Report 24168337 (Version 1)
Quarter: 2024Q3

REPORT INFORMATION
  Report Type: Spontaneous
  Country: ES (occurrence: ES)
  Receive Date: 20240802
  Receipt Date: 20240802
  Transmission Date: 20241017
  Serious: Yes (Death, Other)
  Sender: AMGEN
  Company Number: ES-AMGEN-ESPSP2024149252

PATIENT

DRUGS (3)
  1. EVOLOCUMAB [Suspect]
     Active Substance: EVOLOCUMAB
     Indication: Primary hypercholesterolaemia
     Dosage: UNK
     Route: 065
  2. EVOLOCUMAB [Suspect]
     Active Substance: EVOLOCUMAB
     Indication: Dyslipidaemia
  3. EVOLOCUMAB [Suspect]
     Active Substance: EVOLOCUMAB
     Indication: Prophylaxis

REACTIONS (10)
  - Cerebrovascular accident [Fatal]
  - Ischaemic stroke [Fatal]
  - Coronary artery bypass [Unknown]
  - Myocardial infarction [Unknown]
  - Peripheral arterial occlusive disease [Unknown]
  - Gastrointestinal disorder [Unknown]
  - Rash pruritic [Unknown]
  - Drug ineffective [Unknown]
  - Treatment noncompliance [Unknown]
  - Low density lipoprotein decreased [Unknown]
